FAERS Safety Report 7227327-2 (Version None)
Quarter: 2011Q1

REPORT INFORMATION
  Report Type: 
  Country: None (occurrence: None)
  Receive Date: 20110114
  Receipt Date: 20110107
  Transmission Date: 20110831
  Serious: Yes (Other)
  Sender: FDA-Public Use
  Company Number: Z0007290A

PATIENT
  Sex: Female
  Weight: 69 kg

DRUGS (10)
  1. PAZOPANIB [Suspect]
     Indication: RENAL CELL CARCINOMA
     Dosage: 800MG PER DAY
     Route: 048
     Dates: start: 20100909
  2. PERINDOPRIL [Concomitant]
  3. FLUVASTATIN [Concomitant]
  4. VITAMIN B [Concomitant]
  5. IMDUR [Concomitant]
  6. ALLOPURINOL [Concomitant]
  7. FUROSEMIDE [Concomitant]
  8. HERBAL MEDICATION [Concomitant]
  9. METOPROLOL [Concomitant]
  10. AMBROXOL [Concomitant]

REACTIONS (1)
  - BLOOD POTASSIUM INCREASED [None]
